FAERS Safety Report 4506801-3 (Version None)
Quarter: 2004Q4

REPORT INFORMATION
  Report Type: 
  Country: None (occurrence: None)
  Receive Date: 20041122
  Receipt Date: 20041111
  Transmission Date: 20050328
  Serious: Yes (Death)
  Sender: FDA-Public Use
  Company Number: US-GLAXOSMITHKLINE-A0533593A

PATIENT

DRUGS (1)
  1. PAXIL [Suspect]

REACTIONS (4)
  - COMPLETED SUICIDE [None]
  - INTENTIONAL OVERDOSE [None]
  - MEDICATION ERROR [None]
  - SEROTONIN SYNDROME [None]
